FAERS Safety Report 12505364 (Version 2)
Quarter: 2016Q3

REPORT INFORMATION
  Report Type: Report from Study
  Country: US (occurrence: US)
  Receive Date: 20160628
  Receipt Date: 20160715
  Transmission Date: 20161109
  Serious: Yes (Hospitalization, Other)
  Sender: FDA-Public Use
  Company Number: US-JNJFOC-20160623970

PATIENT
  Age: 72 Year
  Sex: Male

DRUGS (6)
  1. FLUDARABINE [Suspect]
     Active Substance: FLUDARABINE PHOSPHATE
     Indication: CHRONIC LYMPHOCYTIC LEUKAEMIA
     Route: 042
     Dates: start: 20160130, end: 20160618
  2. FLUDARABINE [Suspect]
     Active Substance: FLUDARABINE PHOSPHATE
     Indication: THERAPY NAIVE
     Route: 042
     Dates: start: 20160130, end: 20160618
  3. IBRUTINIB [Suspect]
     Active Substance: IBRUTINIB
     Indication: THERAPY NAIVE
     Route: 065
     Dates: start: 20160624
  4. IBRUTINIB [Suspect]
     Active Substance: IBRUTINIB
     Indication: CHRONIC LYMPHOCYTIC LEUKAEMIA
     Route: 065
     Dates: start: 20160130, end: 20160618
  5. IBRUTINIB [Suspect]
     Active Substance: IBRUTINIB
     Indication: CHRONIC LYMPHOCYTIC LEUKAEMIA
     Route: 065
     Dates: start: 20160624
  6. IBRUTINIB [Suspect]
     Active Substance: IBRUTINIB
     Indication: THERAPY NAIVE
     Route: 065
     Dates: start: 20160130, end: 20160618

REACTIONS (5)
  - Acute kidney injury [Recovered/Resolved]
  - Dehydration [Recovered/Resolved]
  - Hyperbilirubinaemia [Unknown]
  - Sepsis [Recovered/Resolved]
  - Haemoglobin decreased [Unknown]

NARRATIVE: CASE EVENT DATE: 20160618
